FAERS Safety Report 9140133 (Version 2)
Quarter: 2013Q1

REPORT INFORMATION
  Report Type: Report from Study
  Country: JP (occurrence: JP)
  Receive Date: 20130305
  Receipt Date: 20130321
  Transmission Date: 20140127
  Serious: Yes (Hospitalization, Other)
  Sender: FDA-Public Use
  Company Number: JP-ASTELLAS-2011JP008776

PATIENT
  Age: 42 Year
  Sex: Female
  Weight: 62 kg

DRUGS (37)
  1. TACROLIMUS CAPSULES [Suspect]
     Indication: LUPUS NEPHRITIS
     Dosage: 3 MG, UNKNOWN/D
     Route: 048
     Dates: start: 20080829, end: 20110818
  2. TACROLIMUS CAPSULES [Suspect]
     Dosage: 1.5 MG, UNKNOWN/D
     Route: 048
     Dates: start: 20080215, end: 20080306
  3. TACROLIMUS CAPSULES [Suspect]
     Dosage: 3 MG, UNKNOWN/D
     Route: 048
     Dates: start: 20080307, end: 20080731
  4. TACROLIMUS CAPSULES [Suspect]
     Dosage: 2 MG, UNKNOWN/D
     Route: 048
     Dates: start: 20080801, end: 20080828
  5. TACROLIMUS CAPSULES [Suspect]
     Dosage: 2 MG, UNKNOWN/D
     Route: 048
     Dates: start: 20110819, end: 20111027
  6. TACROLIMUS CAPSULES [Suspect]
     Dosage: 3 MG, UNKNOWN/D
     Route: 048
     Dates: start: 20111028, end: 20111215
  7. TACROLIMUS CAPSULES [Suspect]
     Dosage: 2 MG, UNKNOWN/D
     Route: 048
     Dates: start: 20111216, end: 20111222
  8. PREDNISOLONE [Concomitant]
     Indication: LUPUS NEPHRITIS
     Dosage: 15 MG, UNKNOWN/D
     Route: 048
     Dates: end: 20080828
  9. PREDNISOLONE [Concomitant]
     Dosage: 12.5 MG, UNKNOWN/D
     Route: 048
     Dates: start: 20080829, end: 20081204
  10. PREDNISOLONE [Concomitant]
     Dosage: 10 MG, UNKNOWN/D
     Route: 048
     Dates: start: 20081205, end: 20111222
  11. PREDNISOLONE [Concomitant]
     Dosage: 20 MG, UNKNOWN/D
     Route: 048
     Dates: start: 20111229, end: 20120216
  12. PREDNISOLONE [Concomitant]
     Route: 048
  13. PREDNISOLONE [Concomitant]
     Dosage: 20 MG, UNKNOWN/D
     Route: 048
     Dates: start: 20121110
  14. NU-LOTAN [Concomitant]
     Dosage: 50 MG, UNKNOWN/D
     Route: 048
  15. GASTER [Concomitant]
     Dosage: 20 MG, UNKNOWN/D
     Route: 048
  16. WARFARIN [Concomitant]
     Dosage: 2.5 MG, UNKNOWN/D
     Route: 048
  17. PURSENNID [Concomitant]
     Dosage: 24 MG, UNKNOWN/D
     Route: 048
  18. BONALON [Concomitant]
     Dosage: 35 MG, WEEKLY
     Route: 048
  19. LOXONIN [Concomitant]
     Indication: SKIN ULCER
     Dosage: UNK
     Route: 048
     Dates: start: 20081205, end: 20090512
  20. LOXONIN [Concomitant]
     Dosage: UNK
     Route: 048
  21. MOHRUS [Concomitant]
     Dosage: UNK
     Route: 062
     Dates: start: 20081205, end: 20090305
  22. SALICYLIC ACID [Concomitant]
     Dosage: UNK
     Route: 061
     Dates: start: 20081205, end: 20090305
  23. SALICYLIC ACID [Concomitant]
     Dosage: UNK
     Route: 061
     Dates: start: 20091118, end: 20100817
  24. ISODINE [Concomitant]
     Indication: PROPHYLAXIS
     Dosage: UNK
     Route: 061
     Dates: start: 20090403, end: 20100817
  25. ISODINE [Concomitant]
     Dosage: UNK
     Route: 061
     Dates: start: 20111028
  26. ALFAROL [Concomitant]
     Dosage: 0.25 UG, UNKNOWN/D
     Route: 048
     Dates: start: 20100820
  27. PL GRAN. [Concomitant]
     Indication: MIXED CONNECTIVE TISSUE DISEASE
     Dosage: UNK
     Route: 048
     Dates: start: 20111028, end: 20111103
  28. POSTERISAN                         /00028601/ [Concomitant]
     Indication: MIXED CONNECTIVE TISSUE DISEASE
     Dosage: 2 G, UNKNOWN/D
     Route: 061
     Dates: start: 20111028, end: 20111124
  29. CRAVIT [Concomitant]
     Indication: URINARY TRACT INFECTION
     Dosage: 500 MG, UNKNOWN/D
     Route: 048
     Dates: start: 20100814, end: 20100816
  30. PROPETO [Concomitant]
     Indication: SKIN ULCER
     Route: 061
  31. ACTOSIN                            /01277502/ [Concomitant]
     Indication: SKIN ULCER
     Route: 061
  32. CADEX                              /00082201/ [Concomitant]
     Indication: SKIN ULCER
     Route: 061
  33. PANSPORIN T [Concomitant]
     Indication: SKIN ULCER
     Route: 048
  34. GEBEN [Concomitant]
     Indication: SKIN ULCER
     Route: 061
  35. NERISONA [Concomitant]
     Indication: SKIN ULCER
     Route: 061
  36. VALTREX [Concomitant]
     Indication: HERPES ZOSTER
     Route: 048
  37. ARASENA A [Concomitant]
     Indication: HERPES ZOSTER
     Route: 061

REACTIONS (5)
  - Urinary tract infection [Recovered/Resolved]
  - Mixed connective tissue disease [Recovering/Resolving]
  - Skin ulcer [Not Recovered/Not Resolved]
  - Herpes zoster [Recovering/Resolving]
  - Acute disseminated encephalomyelitis [Recovering/Resolving]
